FAERS Safety Report 20511102 (Version 1)
Quarter: 2022Q1

REPORT INFORMATION
  Report Type: Spontaneous
  Country: US (occurrence: US)
  Receive Date: 20220224
  Receipt Date: 20220224
  Transmission Date: 20220423
  Serious: No
  Sender: FDA-Public Use
  Company Number: US-GLENMARK PHARMACEUTICALS-2021GMK066886

PATIENT

DRUGS (1)
  1. IMIQUIMOD [Suspect]
     Active Substance: IMIQUIMOD
     Indication: Skin papilloma
     Dosage: 2X DAILY (BID)
     Route: 061

REACTIONS (2)
  - Product use in unapproved indication [Unknown]
  - No adverse event [Unknown]
